FAERS Safety Report 21355713 (Version 1)
Quarter: 2022Q3

REPORT INFORMATION
  Report Type: Spontaneous
  Country: US (occurrence: US)
  Receive Date: 20220920
  Receipt Date: 20220920
  Transmission Date: 20221027
  Serious: No
  Sender: FDA-Public Use
  Company Number: US-THERAPEUTICSMD-2022TMD00774

PATIENT
  Sex: Male

DRUGS (1)
  1. ANNOVERA [Suspect]
     Active Substance: ETHINYL ESTRADIOL\SEGESTERONE ACETATE
     Dosage: UNK
     Route: 061
     Dates: start: 2022, end: 2022

REACTIONS (2)
  - Allergic reaction to excipient [Recovered/Resolved]
  - Exposure via partner [Recovered/Resolved]

NARRATIVE: CASE EVENT DATE: 20220101
